FAERS Safety Report 16248583 (Version 2)
Quarter: 2019Q3

REPORT INFORMATION
  Report Type: Report from Study
  Country: JP (occurrence: JP)
  Receive Date: 20190429
  Receipt Date: 20190815
  Transmission Date: 20191004
  Serious: Yes (Death)
  Sender: FDA-Public Use
  Company Number: JP-AMGEN-JPNCT2019065718

PATIENT
  Age: 90 Year
  Sex: Female

DRUGS (9)
  1. CONIEL [Concomitant]
     Active Substance: BENIDIPINE HYDROCHLORIDE
     Dosage: UNK
     Route: 048
  2. DARBEPOETIN ALFA [Suspect]
     Active Substance: DARBEPOETIN ALFA
     Indication: MYELODYSPLASTIC SYNDROME
     Dosage: 120 MICROGRAM
     Route: 058
     Dates: start: 20170719, end: 20170719
  3. EXJADE [Concomitant]
     Active Substance: DEFERASIROX
     Dosage: UNK
     Route: 048
     Dates: end: 20171025
  4. FEBURIC [Concomitant]
     Active Substance: FEBUXOSTAT
     Dosage: UNK
     Route: 048
  5. DARBEPOETIN ALFA [Suspect]
     Active Substance: DARBEPOETIN ALFA
     Dosage: 180 MICROGRAM, QWK
     Route: 058
     Dates: start: 20170726, end: 20171025
  6. EXFORGE [Concomitant]
     Active Substance: AMLODIPINE BESYLATE\VALSARTAN
     Dosage: UNK
     Route: 048
     Dates: end: 20171025
  7. FEMARA [Concomitant]
     Active Substance: LETROZOLE
     Dosage: UNK
     Route: 048
     Dates: end: 20171025
  8. EDIROL [Concomitant]
     Active Substance: ELDECALCITOL
     Dosage: UNK
     Route: 048
  9. BONALON [Concomitant]
     Active Substance: ALENDRONATE SODIUM
     Dosage: UNK
     Route: 048
     Dates: end: 20171025

REACTIONS (2)
  - Contusion [Fatal]
  - Cerebral haemorrhage [Fatal]
